FAERS Safety Report 24999169 (Version 6)
Quarter: 2025Q4

REPORT INFORMATION
  Report Type: Spontaneous
  Country: US (occurrence: US)
  Receive Date: 20250222
  Receipt Date: 20251106
  Transmission Date: 20260118
  Serious: Yes (Other)
  Sender: SANOFI AVENTIS
  Company Number: US-SA-2025SA047000

PATIENT
  Age: 54 Year
  Sex: Female

DRUGS (2)
  1. DUPIXENT [Suspect]
     Active Substance: DUPILUMAB
     Indication: Neurodermatitis
     Dosage: 600 MG, 1X
     Route: 058
     Dates: start: 202412, end: 202412
  2. DUPIXENT [Suspect]
     Active Substance: DUPILUMAB
     Indication: Dermatitis atopic
     Dosage: 300 MG, QOW
     Route: 058
     Dates: start: 202412

REACTIONS (22)
  - Blindness [Unknown]
  - Astigmatism [Unknown]
  - Visual impairment [Unknown]
  - Condition aggravated [Unknown]
  - Nausea [Unknown]
  - Depression [Unknown]
  - Malaise [Unknown]
  - Influenza [Unknown]
  - Infection parasitic [Unknown]
  - Headache [Unknown]
  - Vision blurred [Unknown]
  - Eye swelling [Unknown]
  - Condition aggravated [Unknown]
  - Ocular hyperaemia [Unknown]
  - Condition aggravated [Unknown]
  - Eye inflammation [Unknown]
  - Condition aggravated [Unknown]
  - Dry eye [Unknown]
  - Blepharitis [Unknown]
  - Condition aggravated [Unknown]
  - Eye pruritus [Unknown]
  - Condition aggravated [Unknown]
